FAERS Safety Report 5253341-2 (Version None)
Quarter: 2007Q1

REPORT INFORMATION
  Report Type: 
  Country: None (occurrence: None)
  Receive Date: 20070301
  Receipt Date: 20070222
  Transmission Date: 20070707
  Serious: Yes (Hospitalization, Disabling)
  Sender: FDA-Public Use
  Company Number: FI-ROCHE-484112

PATIENT
  Age: 14 Year
  Sex: Male

DRUGS (3)
  1. ROACCUTAN [Suspect]
     Route: 048
     Dates: start: 20060516, end: 20060824
  2. ZYPREXA [Concomitant]
     Dosage: DOSE INCREASED TO 10 MG ON 17 MAY 2006 AND STOPPED 15 JUNE 2006.
     Route: 048
     Dates: start: 20060303, end: 20060615
  3. TEMESTA [Concomitant]
     Route: 048
     Dates: start: 20060511

REACTIONS (4)
  - ANXIETY [None]
  - BREATH HOLDING [None]
  - OBSESSIVE-COMPULSIVE DISORDER [None]
  - TREMOR [None]
